FAERS Safety Report 17917161 (Version 1)
Quarter: 2020Q2

REPORT INFORMATION
  Report Type: Spontaneous
  Country: CN (occurrence: CN)
  Receive Date: 20200619
  Receipt Date: 20200619
  Transmission Date: 20200714
  Serious: Yes (Other)
  Sender: FDA-Public Use
  Company Number: CN-PFIZER INC-2020159010

PATIENT
  Age: 77 Year
  Sex: Female

DRUGS (3)
  1. LYRICA [Suspect]
     Active Substance: PREGABALIN
     Dosage: 2 DF, 2X/DAY
     Route: 048
     Dates: start: 202004, end: 20200416
  2. LYRICA [Suspect]
     Active Substance: PREGABALIN
     Indication: HERPES ZOSTER
     Dosage: 1 DF, 3X/DAY
     Route: 048
     Dates: start: 20200325, end: 202004
  3. GLUTAMINE [Concomitant]
     Active Substance: GLUTAMINE
     Dosage: UNK

REACTIONS (13)
  - Nausea [Unknown]
  - Somnolence [Unknown]
  - Ataxia [Unknown]
  - Decreased appetite [Unknown]
  - Fall [Unknown]
  - Dry mouth [Unknown]
  - Dizziness [Not Recovered/Not Resolved]
  - Gait disturbance [Unknown]
  - Language disorder [Unknown]
  - Cerebral infarction [Unknown]
  - Vision blurred [Unknown]
  - Confusional state [Unknown]
  - Headache [Not Recovered/Not Resolved]

NARRATIVE: CASE EVENT DATE: 20200330
